FAERS Safety Report 10667667 (Version 1)
Quarter: 2014Q4

REPORT INFORMATION
  Report Type: Spontaneous
  Country: FI (occurrence: FI)
  Receive Date: 20141222
  Receipt Date: 20141222
  Transmission Date: 20150529
  Serious: Yes (Hospitalization, Other)
  Sender: FDA-Public Use
  Company Number: FI-BANPHARM-20143296

PATIENT
  Age: 26 Year
  Sex: Female

DRUGS (1)
  1. VALPROIC ACID UNKNOWN PRODUCT [Suspect]
     Active Substance: VALPROIC ACID
     Indication: EPILEPSY
     Dosage: 1500 MG, QD,
     Route: 048

REACTIONS (7)
  - Acute hepatic failure [None]
  - Metabolic encephalopathy [Recovered/Resolved]
  - Hepatic failure [Recovered/Resolved]
  - Pancreatitis [Recovered/Resolved]
  - Blood lactic acid increased [None]
  - Brain oedema [None]
  - Liver transplant [None]
